FAERS Safety Report 8298224-9 (Version None)
Quarter: 2012Q2

REPORT INFORMATION
  Report Type: 
  Country: None (occurrence: None)
  Receive Date: 20120419
  Receipt Date: 20120323
  Transmission Date: 20120825
  Serious: Yes (Other)
  Sender: FDA-Public Use
  Company Number: US-BRISTOL-MYERS SQUIBB COMPANY-16421281

PATIENT
  Age: 63 Year
  Sex: Male
  Weight: 83 kg

DRUGS (12)
  1. TERAZOSIN HCL [Concomitant]
  2. METHYLPREDNISOLONE ACETATE [Concomitant]
     Dosage: 1 DF= 125 UNIT NOT CLEARLY MENTIONED. FORM: INJ
  3. PRAVASTATIN SODIUM [Concomitant]
     Dosage: 2-3 PER WEEK
  4. NASONEX [Concomitant]
  5. YERVOY [Suspect]
     Indication: METASTATIC MALIGNANT MELANOMA
     Dosage: 4 CYC * 21 DAYS
     Route: 042
     Dates: start: 20120203
  6. LOVENOX [Concomitant]
  7. GRANISETRON  HCL [Concomitant]
     Dosage: SOLID
  8. QUINAPRIL [Concomitant]
  9. OMEPRAZOLE [Concomitant]
     Dosage: 20MG 2-3 PER WEEK
  10. TRIAMTERENE [Concomitant]
  11. CARTIA XT [Concomitant]
  12. HYDROCORTISONE [Concomitant]
     Dosage: FORM: INJ

REACTIONS (6)
  - HYPOAESTHESIA [None]
  - NEOPLASM MALIGNANT [None]
  - RASH [None]
  - BODY TEMPERATURE INCREASED [None]
  - DIARRHOEA [None]
  - RHINORRHOEA [None]
